FAERS Safety Report 9984750 (Version 1)
Quarter: 2014Q1

REPORT INFORMATION
  Report Type: Spontaneous
  Country: US (occurrence: US)
  Receive Date: 20140307
  Receipt Date: 20140307
  Transmission Date: 20141002
  Serious: Yes (Death, Other)
  Sender: FDA-Public Use
  Company Number: PHHY2014US024477

PATIENT
  Sex: 0

DRUGS (5)
  1. POTASSIUM CHLORIDE [Suspect]
     Route: 064
  2. DOXYCYCLINE [Suspect]
     Route: 064
  3. OXYTOCIN [Suspect]
     Route: 064
  4. TICARCILLIN [Suspect]
     Route: 064
  5. CLAVULANATE POTASSIUM [Suspect]
     Route: 064

REACTIONS (5)
  - Foetal death [Fatal]
  - Conjoined twins [Unknown]
  - Neural tube defect [Unknown]
  - Cerebral ventricle dilatation [Unknown]
  - Foetal exposure during pregnancy [Unknown]
